FAERS Safety Report 8800640 (Version 1)
Quarter: 2012Q4

REPORT INFORMATION
  Report Type: 
  Country: US (occurrence: US)
  Receive Date: 20120921
  Receipt Date: 20120921
  Transmission Date: 20130627
  Serious: Yes (Death)
  Sender: FDA-Public Use
  Company Number: US-OPTIMER-20120108

PATIENT
  Age: 83 Year
  Sex: Female

DRUGS (2)
  1. DIFICID [Suspect]
     Indication: CLOSTRIDIUM DIFFICILE COLITIS
     Dosage: 200 mg, bid
     Route: 065
  2. METRONIDAZOLE [Concomitant]
     Indication: CLOSTRIDIUM DIFFICILE COLITIS
     Dosage: UNK
     Route: 042

REACTIONS (2)
  - Neoplasm malignant [Fatal]
  - Off label use [Unknown]
